FAERS Safety Report 5188194-4 (Version None)
Quarter: 2006Q4

REPORT INFORMATION
  Report Type: 
  Country: None (occurrence: None)
  Receive Date: 20061221
  Receipt Date: 20060628
  Transmission Date: 20070319
  Serious: Yes (Hospitalization)
  Sender: FDA-Public Use
  Company Number: PHBS2006IT09882

PATIENT
  Age: 65 Year
  Sex: Female

DRUGS (4)
  1. ZOMETA [Suspect]
     Indication: BREAST CANCER STAGE III
     Dosage: 4 MG, EVERY 4 WEEKS
     Route: 042
     Dates: start: 20040202, end: 20060202
  2. VALPRESSION [Concomitant]
     Indication: HYPERTENSION
     Dosage: 160 MG/D
     Route: 048
  3. AROMASIN [Concomitant]
     Route: 048
  4. DURAGESIC-100 [Concomitant]
     Route: 062

REACTIONS (2)
  - OSTEONECROSIS [None]
  - WOUND DEBRIDEMENT [None]
